FAERS Safety Report 14842767 (Version 1)
Quarter: 2018Q2

REPORT INFORMATION
  Report Type: Report from Study
  Country: None (occurrence: US)
  Receive Date: 20180503
  Receipt Date: 20180503
  Transmission Date: 20180711
  Serious: Yes (Other)
  Sender: FDA-Public Use
  Company Number: US-ABBVIE-17K-163-2014433-00

PATIENT
  Age: 59 Year
  Sex: Female
  Weight: 82.17 kg

DRUGS (3)
  1. HUMIRA [Suspect]
     Active Substance: ADALIMUMAB
     Indication: RHEUMATOID ARTHRITIS
     Route: 058
     Dates: start: 20160708
  2. HUMIRA [Suspect]
     Active Substance: ADALIMUMAB
     Dosage: RE-INITIATED HUMIRA
     Route: 058
  3. HUMIRA [Suspect]
     Active Substance: ADALIMUMAB
     Route: 058

REACTIONS (54)
  - Post procedural complication [Unknown]
  - Psoriatic arthropathy [Unknown]
  - Nerve injury [Unknown]
  - Urinary incontinence [Not Recovered/Not Resolved]
  - Sneezing [Unknown]
  - Flank pain [Unknown]
  - Ear infection [Not Recovered/Not Resolved]
  - Diarrhoea [Not Recovered/Not Resolved]
  - Skin disorder [Unknown]
  - Extremity contracture [Unknown]
  - Migraine [Unknown]
  - Paranasal sinus hypersecretion [Unknown]
  - Haemorrhoidal haemorrhage [Not Recovered/Not Resolved]
  - Tinnitus [Unknown]
  - Post procedural complication [Not Recovered/Not Resolved]
  - Pain [Not Recovered/Not Resolved]
  - Rash macular [Not Recovered/Not Resolved]
  - Back pain [Not Recovered/Not Resolved]
  - Muscle spasms [Not Recovered/Not Resolved]
  - Spinal deformity [Unknown]
  - Skin ulcer [Recovered/Resolved]
  - Slow speech [Unknown]
  - Dizziness [Unknown]
  - Sensitivity to weather change [Not Recovered/Not Resolved]
  - Neck pain [Unknown]
  - Inappropriate schedule of drug administration [Unknown]
  - Skin indentation [Unknown]
  - Peripheral coldness [Unknown]
  - Middle ear effusion [Unknown]
  - Cough [Unknown]
  - Contusion [Recovered/Resolved]
  - Wound secretion [Unknown]
  - Skin mass [Not Recovered/Not Resolved]
  - Insomnia [Unknown]
  - Depression [Not Recovered/Not Resolved]
  - Weight increased [Not Recovered/Not Resolved]
  - Suicidal ideation [Not Recovered/Not Resolved]
  - Fall [Recovered/Resolved]
  - Ankle fracture [Recovered/Resolved]
  - Papule [Unknown]
  - Allergy to plants [Unknown]
  - Dysarthria [Unknown]
  - Decreased appetite [Unknown]
  - Skin discolouration [Unknown]
  - Hypoaesthesia [Unknown]
  - Poor quality sleep [Not Recovered/Not Resolved]
  - Arthralgia [Recovered/Resolved]
  - Breast mass [Not Recovered/Not Resolved]
  - Weight increased [Unknown]
  - Poor peripheral circulation [Not Recovered/Not Resolved]
  - Pain in extremity [Not Recovered/Not Resolved]
  - Injection site pain [Recovered/Resolved]
  - Headache [Not Recovered/Not Resolved]
  - Nausea [Not Recovered/Not Resolved]

NARRATIVE: CASE EVENT DATE: 201607
